FAERS Safety Report 17219552 (Version 2)
Quarter: 2020Q1

REPORT INFORMATION
  Report Type: Spontaneous
  Country: US (occurrence: US)
  Receive Date: 20191231
  Receipt Date: 20200106
  Transmission Date: 20200409
  Serious: Yes (Hospitalization)
  Sender: FDA-Public Use
  Company Number: US-PFIZER INC-2019560495

PATIENT
  Age: 36 Year
  Sex: Male
  Weight: 77.98 kg

DRUGS (2)
  1. PHENYTOIN. [Suspect]
     Active Substance: PHENYTOIN
     Dosage: 600 MG, UNK (HE IS TAKING ABOUT 6 PILLS RIGHT NOW)
  2. PHENYTOIN. [Suspect]
     Active Substance: PHENYTOIN
     Indication: SEIZURE
     Dosage: UNK, DAILY 100MG TAKES 5 TO 6 CAPSULES IN A DAY)

REACTIONS (3)
  - Gait disturbance [Unknown]
  - Drug ineffective [Not Recovered/Not Resolved]
  - Toxicity to various agents [Unknown]
